FAERS Safety Report 11051329 (Version 3)
Quarter: 2016Q2

REPORT INFORMATION
  Report Type: Spontaneous
  Country: US (occurrence: US)
  Receive Date: 20150421
  Receipt Date: 20160426
  Transmission Date: 20160815
  Serious: No
  Sender: FDA-Public Use
  Company Number: US-JNJFOC-20150409125

PATIENT
  Sex: Male

DRUGS (3)
  1. RISPERDAL [Suspect]
     Active Substance: RISPERIDONE
     Indication: ANXIETY
     Dosage: VARYING DOSES OF 0.5MG TO 1MG
     Route: 048
     Dates: start: 2003, end: 2004
  2. RISPERDAL [Suspect]
     Active Substance: RISPERIDONE
     Indication: ADJUSTMENT DISORDER
     Dosage: VARYING DOSES OF 0.5MG TO 1MG
     Route: 048
     Dates: start: 2003, end: 2004
  3. RISPERDAL [Suspect]
     Active Substance: RISPERIDONE
     Indication: DEPRESSION
     Dosage: VARYING DOSES OF 0.5MG TO 1MG
     Route: 048
     Dates: start: 2003, end: 2004

REACTIONS (9)
  - Product use issue [Unknown]
  - Depression [Unknown]
  - Abnormal weight gain [Unknown]
  - Off label use [Unknown]
  - Galactorrhoea [Unknown]
  - Gynaecomastia [Unknown]
  - Emotional distress [Unknown]
  - Hyperprolactinaemia [Unknown]
  - Anxiety [Unknown]

NARRATIVE: CASE EVENT DATE: 2003
